FAERS Safety Report 8908323 (Version 1)
Quarter: 2012Q4

REPORT INFORMATION
  Report Type: 
  Country: US (occurrence: US)
  Receive Date: 20121114
  Receipt Date: 20121114
  Transmission Date: 20130627
  Serious: Yes (Other)
  Sender: FDA-Public Use
  Company Number: CHPA2012US023078

PATIENT
  Age: 70 Year
  Sex: Female

DRUGS (2)
  1. EXCEDRIN EXTRA STRENGTH [Suspect]
     Indication: NECK PAIN
     Dosage: 2 DF, QD
     Route: 048
     Dates: start: 1967
  2. EXCEDRIN MIGRAINE [Suspect]
     Indication: NECK PAIN
     Dosage: 2 DF, QD
     Route: 048

REACTIONS (2)
  - Gastric ulcer [Not Recovered/Not Resolved]
  - Drug administration error [Unknown]
